FAERS Safety Report 6474790-0 (Version None)
Quarter: 2009Q4

REPORT INFORMATION
  Report Type: 
  Country: None (occurrence: None)
  Receive Date: 20091204
  Receipt Date: 20090203
  Transmission Date: 20100525
  Serious: Yes (Other)
  Sender: FDA-Public Use
  Company Number: US-ELI_LILLY_AND_COMPANY-US200902000508

PATIENT
  Sex: Female

DRUGS (3)
  1. FORTEO [Suspect]
     Dates: start: 20081201
  2. TYLENOL                                 /SCH/ [Concomitant]
     Dosage: UNK, AS NEEDED
  3. DIOVAN [Concomitant]
     Dosage: 160 MG, UNK

REACTIONS (1)
  - PANCREATITIS [None]
